FAERS Safety Report 12355912 (Version 1)
Quarter: 2016Q2

REPORT INFORMATION
  Report Type: Spontaneous
  Country: US (occurrence: US)
  Receive Date: 20160511
  Receipt Date: 20160511
  Transmission Date: 20160815
  Serious: Yes (Other)
  Sender: FDA-Public Use
  Company Number: ADR-2015-01556

PATIENT
  Age: 20 Year
  Sex: Male

DRUGS (1)
  1. BACLOFEN. [Suspect]
     Active Substance: BACLOFEN
     Route: 037

REACTIONS (7)
  - Pyrexia [Unknown]
  - Post procedural infection [Unknown]
  - Hypotension [Unknown]
  - Medical device site infection [Unknown]
  - Tachypnoea [Unknown]
  - Bacterial infection [Unknown]
  - Bacterial test positive [Unknown]

NARRATIVE: CASE EVENT DATE: 20150803
